FAERS Safety Report 7830033-4 (Version None)
Quarter: 2011Q4

REPORT INFORMATION
  Report Type: 
  Country: None (occurrence: None)
  Receive Date: 20111021
  Receipt Date: 20111014
  Transmission Date: 20120403
  Serious: Yes (Hospitalization)
  Sender: FDA-Public Use
  Company Number: TR-CEPHALON-2011005448

PATIENT
  Sex: Male
  Weight: 70 kg

DRUGS (2)
  1. BENDAMUSTINE HCL [Suspect]
     Route: 042
     Dates: start: 20110615
  2. RITUXIMAB [Suspect]
     Route: 042
     Dates: start: 20110615

REACTIONS (1)
  - GENERAL PHYSICAL HEALTH DETERIORATION [None]
